FAERS Safety Report 5229464-0 (Version None)
Quarter: 2007Q1

REPORT INFORMATION
  Report Type: 
  Country: None (occurrence: None)
  Receive Date: 20061201
  Receipt Date: 20060909
  Transmission Date: 20070707
  Serious: No
  Sender: FDA-Public Use
  Company Number: 2006PV020990

PATIENT
  Age: 76 Year
  Sex: Female
  Weight: 70.7611 kg

DRUGS (17)
  1. BYETTA [Suspect]
     Indication: DIABETES MELLITUS NON-INSULIN-DEPENDENT
     Dosage: 5 MCG;BID;SC
     Route: 058
     Dates: start: 20060906
  2. GLIPIZIDE [Concomitant]
  3. COREG [Concomitant]
  4. LANOXIN [Concomitant]
  5. SYNTHROID [Concomitant]
  6. SPIRONOLACTONE [Concomitant]
  7. LASIX [Concomitant]
  8. LOPID [Concomitant]
  9. MAGNESIUM [Concomitant]
  10. POTASSIUM ACETATE [Concomitant]
  11. FOLIC ACID [Concomitant]
  12. LORAZEPAM [Concomitant]
  13. CALCIUM [Concomitant]
  14. NEURONTIN [Concomitant]
  15. VITAMIN B COMPLEX CAP [Concomitant]
  16. DUONEB [Concomitant]
  17. ZYRTEC [Concomitant]

REACTIONS (4)
  - ASTHENIA [None]
  - BLOOD GLUCOSE DECREASED [None]
  - FEELING HOT [None]
  - FEELING JITTERY [None]
